FAERS Safety Report 5139531-8 (Version None)
Quarter: 2006Q4

REPORT INFORMATION
  Report Type: 
  Country: None (occurrence: None)
  Receive Date: 20061024
  Receipt Date: 20061011
  Transmission Date: 20070319
  Serious: Yes (Hospitalization)
  Sender: FDA-Public Use
  Company Number: 2006125006

PATIENT
  Age: 70 Year
  Sex: Male
  Weight: 93 kg

DRUGS (11)
  1. SUTENT [Suspect]
     Dosage: 37.5 MG (37.5 MG, 1 IN 1 D), ORAL
     Route: 048
     Dates: start: 20060429, end: 20060526
  2. INSULIN (INSULIN) [Concomitant]
  3. GLICLAZIDE (GLICLAZIDE) [Concomitant]
  4. TRAMADOL HCL [Concomitant]
  5. ASCORBIC ACID [Concomitant]
  6. IRON (IRON) [Concomitant]
  7. THIAMINE (THIAMINE) [Concomitant]
  8. CARVEDILOL [Concomitant]
  9. BROMAZEPAM (BROMAZEPAM) [Concomitant]
  10. THEOPHYYLLINE (THEOPHYLLINE) [Concomitant]
  11. AMLODIPINE [Concomitant]

REACTIONS (2)
  - ATRIAL FIBRILLATION [None]
  - PULMONARY OEDEMA [None]
